FAERS Safety Report 14699920 (Version 2)
Quarter: 2018Q2

REPORT INFORMATION
  Report Type: Other
  Country: IT (occurrence: IT)
  Receive Date: 20180330
  Receipt Date: 20180405
  Transmission Date: 20180711
  Serious: Yes (Other)
  Sender: FDA-Public Use
  Company Number: IT-TAKEDA-2018TUS007459

PATIENT
  Age: 69 Year
  Sex: Male

DRUGS (1)
  1. ENTYVIO [Suspect]
     Active Substance: VEDOLIZUMAB
     Indication: COLITIS ULCERATIVE
     Dosage: 300 MG, UNK
     Route: 042
     Dates: start: 20161214, end: 20171221

REACTIONS (1)
  - Adenocarcinoma of colon [Unknown]

NARRATIVE: CASE EVENT DATE: 20180215
